FAERS Safety Report 6115203-8 (Version None)
Quarter: 2009Q1

REPORT INFORMATION
  Report Type: 
  Country: None (occurrence: None)
  Receive Date: 20090311
  Receipt Date: 20080917
  Transmission Date: 20090719
  Serious: Yes (Other)
  Sender: FDA-Public Use
  Company Number: US200809004020

PATIENT
  Age: 39 Year
  Sex: Female

DRUGS (1)
  1. GEMZAR [Suspect]
     Indication: BREAST CANCER RECURRENT
     Dates: end: 20080801

REACTIONS (1)
  - RECALL PHENOMENON [None]
